FAERS Safety Report 8968087 (Version 1)
Quarter: 2012Q4

REPORT INFORMATION
  Report Type: 
  Country: US (occurrence: US)
  Receive Date: 20121218
  Receipt Date: 20121218
  Transmission Date: 20130627
  Serious: Yes (Other)
  Sender: FDA-Public Use
  Company Number: US-JNJFOC-20121203216

PATIENT
  Age: 36 Year
  Sex: Female
  Weight: 112.04 kg

DRUGS (2)
  1. LEVAQUIN [Suspect]
     Indication: PNEUMONIA
     Route: 048
     Dates: start: 20051128, end: 20051208
  2. IBUPROFEN [Concomitant]
     Indication: PYREXIA
     Route: 048
     Dates: start: 20051128, end: 20051128

REACTIONS (17)
  - Nerve injury [Not Recovered/Not Resolved]
  - Convulsion [Recovered/Resolved]
  - Panic disorder [Recovered/Resolved]
  - Oxygen saturation decreased [Recovered/Resolved]
  - Eye pain [Not Recovered/Not Resolved]
  - Feeling abnormal [Recovered/Resolved]
  - Fibromyalgia [Not Recovered/Not Resolved]
  - Multiple chemical sensitivity [Not Recovered/Not Resolved]
  - Bone disorder [Not Recovered/Not Resolved]
  - Muscle spasms [Not Recovered/Not Resolved]
  - Bedridden [Not Recovered/Not Resolved]
  - Arthralgia [Recovered/Resolved]
  - Nightmare [Recovered/Resolved]
  - Suicidal ideation [Recovered/Resolved]
  - Visual acuity reduced [Not Recovered/Not Resolved]
  - Hypoaesthesia [Not Recovered/Not Resolved]
  - Burning sensation [Not Recovered/Not Resolved]
